FAERS Safety Report 11119526 (Version 3)
Quarter: 2015Q4

REPORT INFORMATION
  Report Type: Report from Study
  Country: BR (occurrence: BR)
  Receive Date: 20150518
  Receipt Date: 20151223
  Transmission Date: 20160304
  Serious: Yes (Other)
  Sender: FDA-Public Use
  Company Number: PHHY2015BR057110

PATIENT
  Age: 45 Year
  Sex: Male
  Weight: 58 kg

DRUGS (2)
  1. SALINE ORAL OTC [Concomitant]
     Active Substance: SODIUM CHLORIDE
     Indication: PRODUCT USED FOR UNKNOWN INDICATION
     Route: 065
  2. EXJADE [Suspect]
     Active Substance: DEFERASIROX
     Indication: ANAEMIA
     Dosage: 2 DF (20MG/KG), QD (IN THE MORNING)
     Route: 048

REACTIONS (22)
  - Diabetes mellitus [Not Recovered/Not Resolved]
  - Malaise [Unknown]
  - Drug ineffective [Unknown]
  - White blood cell count decreased [Recovering/Resolving]
  - Hepatotoxicity [Recovering/Resolving]
  - Pyrexia [Recovering/Resolving]
  - Wound infection [Not Recovered/Not Resolved]
  - Cardiac murmur [Recovering/Resolving]
  - Red blood cell count decreased [Recovering/Resolving]
  - Fatigue [Recovering/Resolving]
  - Haemorrhage [Recovered/Resolved]
  - B-cell lymphoma [Recovered/Resolved]
  - Iron metabolism disorder [Recovering/Resolving]
  - Cardiac disorder [Unknown]
  - Gastrointestinal disorder [Unknown]
  - Serum ferritin increased [Not Recovered/Not Resolved]
  - Bile duct stone [Unknown]
  - Wound secretion [Not Recovered/Not Resolved]
  - Drug intolerance [Unknown]
  - Gastrointestinal infection [Recovering/Resolving]
  - Skin wound [Not Recovered/Not Resolved]
  - Central nervous system lesion [Recovering/Resolving]

NARRATIVE: CASE EVENT DATE: 2011
